FAERS Safety Report 9845261 (Version 2)
Quarter: 2014Q1

REPORT INFORMATION
  Report Type: Report from Study
  Country: FR (occurrence: FR)
  Receive Date: 20140127
  Receipt Date: 20140127
  Transmission Date: 20141002
  Serious: Yes (Death, Hospitalization)
  Sender: FDA-Public Use
  Company Number: FR-ASTELLAS-2013EU010234

PATIENT
  Sex: Male

DRUGS (7)
  1. ENZALUTAMIDE [Suspect]
     Indication: PROSTATE CANCER METASTATIC
     Dosage: 160 MG, UNKNOWN/D
     Route: 048
     Dates: start: 20131030, end: 20131116
  2. ATARAX                             /00058401/ [Concomitant]
     Indication: ANXIETY
     Dosage: 1 DF, UID/QD
     Route: 048
     Dates: start: 2012
  3. DAFALGAN [Concomitant]
     Dosage: UNK
     Route: 048
  4. FORLAX                             /00754501/ [Concomitant]
     Dosage: UNK
     Route: 048
  5. PANTOPRAZOLE [Concomitant]
     Dosage: 40 MG, UID/QD
     Route: 048
     Dates: start: 2012
  6. XATRAL [Concomitant]
     Dosage: UNK
     Route: 048
  7. SEROPRAM                           /00582602/ [Concomitant]
     Dosage: UNK
     Route: 048

REACTIONS (4)
  - Dyspnoea [Fatal]
  - Paraesthesia [Fatal]
  - General physical health deterioration [Recovered/Resolved]
  - Respiratory disorder [Recovered/Resolved]
